FAERS Safety Report 6782472-0 (Version None)
Quarter: 2010Q2

REPORT INFORMATION
  Report Type: 
  Country: None (occurrence: None)
  Receive Date: 20100616
  Receipt Date: 20100610
  Transmission Date: 20101027
  Serious: Yes (Death)
  Sender: FDA-Public Use
  Company Number: 2010US002046

PATIENT
  Age: 40 Year
  Sex: Female

DRUGS (6)
  1. PROGRAF [Suspect]
     Indication: LUNG TRANSPLANT
  2. PREDNISONE TAB [Suspect]
     Indication: LUNG TRANSPLANT
  3. MYCOPHENOLATE MOFETIL [Suspect]
     Indication: LUNG TRANSPLANT
  4. VALGANCICLOVIR [Concomitant]
  5. VORICONAZOLE [Concomitant]
  6. SULFAMETHOXAZOLE AND TRIMETHOPRIM [Concomitant]

REACTIONS (5)
  - BACK PAIN [None]
  - MULTI-ORGAN FAILURE [None]
  - SEPSIS [None]
  - UTERINE LEIOMYOSARCOMA [None]
  - WEIGHT INCREASED [None]
